FAERS Safety Report 22040221 (Version 2)
Quarter: 2023Q1

REPORT INFORMATION
  Report Type: Spontaneous
  Country: US (occurrence: US)
  Receive Date: 20230227
  Receipt Date: 20230307
  Transmission Date: 20230418
  Serious: No
  Sender: FDA-Public Use
  Company Number: US-PFIZER INC-PV202300035495

PATIENT
  Age: 43 Year
  Sex: Female
  Weight: 104.33 kg

DRUGS (2)
  1. CIBINQO [Suspect]
     Active Substance: ABROCITINIB
     Indication: Dermatitis atopic
     Dosage: 100 MG, 1X/DAY (100MG ORAL TABLET TAKEN ONCE A DAY)
     Route: 048
     Dates: start: 202110, end: 20230217
  2. CIBINQO [Suspect]
     Active Substance: ABROCITINIB
     Indication: Eczema

REACTIONS (1)
  - Feeling abnormal [Unknown]
